FAERS Safety Report 9279109 (Version 1)
Quarter: 2013Q2

REPORT INFORMATION
  Report Type: Spontaneous
  Country: AT (occurrence: AT)
  Receive Date: 20130508
  Receipt Date: 20130508
  Transmission Date: 20140414
  Serious: Yes (Other)
  Sender: FDA-Public Use
  Company Number: AT-EISAI INC-E2007-00996-SPO-AT

PATIENT
  Sex: Male
  Weight: 75 kg

DRUGS (5)
  1. FYCOMPA (PERAMPANEL) [Suspect]
     Indication: EPILEPSY
     Route: 048
     Dates: start: 20121129, end: 20121205
  2. FYCOMPA (PERAMPANEL) [Suspect]
     Route: 048
     Dates: start: 20121206, end: 20121212
  3. FYCOMPA (PERAMPANEL) [Suspect]
     Route: 048
     Dates: start: 20121213, end: 20121215
  4. VPA [Concomitant]
     Indication: EPILEPSY
     Dosage: 1000 MG DAILY
     Route: 048
  5. LAC [Concomitant]
     Indication: EPILEPSY
     Dosage: 300 MG DAILY
     Route: 048

REACTIONS (2)
  - Depression [Recovering/Resolving]
  - Suicidal ideation [Recovering/Resolving]
